FAERS Safety Report 21229606 (Version 1)
Quarter: 2022Q3

REPORT INFORMATION
  Report Type: Spontaneous
  Country: US (occurrence: US)
  Receive Date: 20220818
  Receipt Date: 20220818
  Transmission Date: 20221026
  Serious: Yes (Hospitalization)
  Sender: FDA-Public Use
  Company Number: US-PFIZER INC-PV202200010642

PATIENT
  Age: 72 Year
  Sex: Female
  Weight: 86.168 kg

DRUGS (6)
  1. ZOCOR [Suspect]
     Active Substance: SIMVASTATIN
     Dosage: UNK
     Route: 048
     Dates: start: 2011
  2. ZOCOR [Suspect]
     Active Substance: SIMVASTATIN
     Dosage: UNK
     Route: 048
  3. PAXLOVID [Suspect]
     Active Substance: NIRMATRELVIR\RITONAVIR
     Indication: COVID-19
     Dosage: UNK; ONLY TOOK 1 DOSE PACK BEFORE GETTING SICK
  4. ROPINIROLE [Suspect]
     Active Substance: ROPINIROLE
     Dosage: UNK
     Dates: start: 2016
  5. LEVOTHYROXINE [Suspect]
     Active Substance: LEVOTHYROXINE
     Dosage: UNK
     Dates: start: 1999
  6. FUROSEMIDE\POTASSIUM CHLORIDE [Suspect]
     Active Substance: FUROSEMIDE\POTASSIUM CHLORIDE
     Dosage: UNK
     Dates: start: 2015

REACTIONS (5)
  - Nausea [Recovered/Resolved]
  - Retching [Recovered/Resolved]
  - Illness [Recovered/Resolved]
  - Taste disorder [Recovered/Resolved]
  - COVID-19 [Unknown]

NARRATIVE: CASE EVENT DATE: 20220526
